FAERS Safety Report 13884074 (Version 1)
Quarter: 2017Q3

REPORT INFORMATION
  Report Type: Spontaneous
  Country: US (occurrence: US)
  Receive Date: 20170820
  Receipt Date: 20170820
  Transmission Date: 20171127
  Serious: No
  Sender: FDA-Public Use
  Company Number: None

PATIENT
  Age: 54 Year
  Sex: Female
  Weight: 54 kg

DRUGS (1)
  1. BUPROPION XL 150MG [Suspect]
     Active Substance: BUPROPION
     Indication: DEPRESSION
     Dosage: ?          QUANTITY:30 TABLET(S) DAILY ORAL?
     Route: 048
     Dates: start: 20170711, end: 20170721

REACTIONS (3)
  - Hot flush [None]
  - Night sweats [None]
  - Product substitution issue [None]

NARRATIVE: CASE EVENT DATE: 20170718
